FAERS Safety Report 5450366-9 (Version None)
Quarter: 2007Q3

REPORT INFORMATION
  Report Type: 
  Country: None (occurrence: None)
  Receive Date: 20070808
  Receipt Date: 20070607
  Transmission Date: 20080115
  Serious: Yes (Other)
  Sender: FDA-Public Use
  Company Number: 37885

PATIENT
  Sex: Male
  Weight: 118 kg

DRUGS (1)
  1. VECURONIUM BROMIDE [Suspect]
     Indication: INTUBATION
     Dosage: 0.08/MG/KG;
     Dates: start: 20070605

REACTIONS (1)
  - DRUG INEFFECTIVE [None]
